FAERS Safety Report 22382774 (Version 1)
Quarter: 2023Q2

REPORT INFORMATION
  Report Type: Spontaneous
  Country: US (occurrence: None)
  Receive Date: 20230526
  Receipt Date: 20230526
  Transmission Date: 20230721
  Serious: Yes (Hospitalization)
  Sender: FDA-Public Use
  Company Number: None

PATIENT
  Age: 49 Year
  Sex: Female

DRUGS (2)
  1. DESCOVY [Suspect]
     Active Substance: EMTRICITABINE\TENOFOVIR ALAFENAMIDE FUMARATE
     Dosage: 200/25MG DAILY ORAL
     Route: 048
     Dates: start: 202103
  2. TIVICAY [Suspect]
     Active Substance: DOLUTEGRAVIR SODIUM
     Dosage: 50MG TWICE DAILY ORAL
     Route: 048
     Dates: start: 202103

REACTIONS (2)
  - Eye haemorrhage [None]
  - Post procedural haemorrhage [None]

NARRATIVE: CASE EVENT DATE: 20230516
